FAERS Safety Report 20664992 (Version 1)
Quarter: 2022Q2

REPORT INFORMATION
  Report Type: Spontaneous
  Country: US (occurrence: US)
  Receive Date: 20220401
  Receipt Date: 20220401
  Transmission Date: 20220720
  Serious: Yes (Other)
  Sender: FDA-Public Use
  Company Number: US-INCYTE CORPORATION-2022IN002955

PATIENT

DRUGS (1)
  1. PEMAZYRE [Suspect]
     Active Substance: PEMIGATINIB
     Indication: Acute lymphocytic leukaemia
     Route: 048

REACTIONS (3)
  - Calciphylaxis [Unknown]
  - Ulcer [Unknown]
  - Off label use [Unknown]
